FAERS Safety Report 14010428 (Version 1)
Quarter: 2017Q3

REPORT INFORMATION
  Report Type: Spontaneous
  Country: US (occurrence: US)
  Receive Date: 20170926
  Receipt Date: 20170926
  Transmission Date: 20171128
  Serious: Yes (Other)
  Sender: FDA-Public Use
  Company Number: US-DRREDDYS-USA/USA/17/0093212

PATIENT
  Age: 58 Year
  Sex: Male
  Weight: 122 kg

DRUGS (6)
  1. FISH OIL [Concomitant]
     Active Substance: FISH OIL
     Indication: BLOOD CHOLESTEROL
     Route: 048
  2. LAMOTRIGINE. [Concomitant]
     Active Substance: LAMOTRIGINE
     Indication: BIPOLAR DISORDER
     Route: 048
     Dates: end: 2016
  3. FINASTERIDE 5 MG [Suspect]
     Active Substance: FINASTERIDE
     Route: 048
     Dates: start: 2009, end: 2014
  4. BAYER ASPIRIN [Concomitant]
     Active Substance: ASPIRIN
     Indication: PRODUCT USED FOR UNKNOWN INDICATION
     Route: 048
  5. FINASTERIDE 5 MG [Suspect]
     Active Substance: FINASTERIDE
     Indication: PROSTATOMEGALY
     Route: 048
     Dates: start: 2009
  6. FINASTERIDE 5 MG [Suspect]
     Active Substance: FINASTERIDE
     Route: 048

REACTIONS (20)
  - Loss of consciousness [Unknown]
  - Semen viscosity decreased [Not Recovered/Not Resolved]
  - Weight increased [Unknown]
  - Social avoidant behaviour [Unknown]
  - Hypertension [Unknown]
  - Amnesia [Unknown]
  - Suicidal ideation [Unknown]
  - Asthenia [Not Recovered/Not Resolved]
  - Lethargy [Unknown]
  - Alopecia [Unknown]
  - Hypotonia [Unknown]
  - Breast enlargement [Not Recovered/Not Resolved]
  - Erectile dysfunction [Not Recovered/Not Resolved]
  - Androgens abnormal [Unknown]
  - Insomnia [Unknown]
  - Testicular disorder [Not Recovered/Not Resolved]
  - Vertigo [Unknown]
  - Dizziness [Not Recovered/Not Resolved]
  - Depression [Unknown]
  - Product quality issue [Unknown]

NARRATIVE: CASE EVENT DATE: 20090930
